FAERS Safety Report 8816272 (Version 1)
Quarter: 2012Q4

REPORT INFORMATION
  Report Type: Spontaneous
  Country: US (occurrence: None)
  Receive Date: 20120927
  Receipt Date: 20120927
  Transmission Date: 20130627
  Serious: Yes (Other)
  Sender: FDA-Public Use
  Company Number: None

PATIENT
  Sex: Female

DRUGS (2)
  1. WELCHOL [Suspect]
  2. BENICAR [Concomitant]

REACTIONS (3)
  - Blood pressure diastolic increased [None]
  - Headache [None]
  - Drug effect decreased [None]
